FAERS Safety Report 4297495-3 (Version None)
Quarter: 2004Q1

REPORT INFORMATION
  Report Type: 
  Country: None (occurrence: None)
  Receive Date: 20040218
  Receipt Date: 20040206
  Transmission Date: 20041129
  Serious: Yes (Other)
  Sender: FDA-Public Use
  Company Number: GB-GLAXOSMITHKLINE-B0322552A

PATIENT
  Age: 67 Year
  Sex: Female
  Weight: 20 kg

DRUGS (13)
  1. ROSIGLITAZONE MALEATE [Suspect]
     Indication: DIABETES MELLITUS
     Dosage: 8MG UNKNOWN
     Route: 048
     Dates: start: 20010425, end: 20010503
  2. IBUPROFEN [Concomitant]
     Route: 065
     Dates: start: 19990602
  3. TAMOXIFEN CITRATE [Concomitant]
     Route: 065
     Dates: start: 19990528
  4. GLYCERYL TRINITRATE [Concomitant]
     Route: 065
     Dates: start: 19990704
  5. ASPIRIN [Concomitant]
     Route: 065
     Dates: start: 19991028
  6. METFORMIN HYDROCHLORIDE [Concomitant]
     Route: 065
     Dates: start: 20001219
  7. ATORVASTATIN [Concomitant]
     Route: 065
     Dates: start: 20001219
  8. SODIUM RABEPRAZOLE [Concomitant]
     Route: 065
     Dates: start: 20001221
  9. ISOSORBIDE MONONITRATE [Concomitant]
     Route: 065
     Dates: start: 20010423
  10. CO-CODAMOL [Concomitant]
     Route: 065
     Dates: start: 19990528
  11. AQUEOUS CREAM BP [Concomitant]
     Route: 065
     Dates: start: 20001010
  12. MENTHOL [Concomitant]
     Route: 065
     Dates: start: 20010503
  13. BETNOVATE [Concomitant]
     Route: 065
     Dates: start: 20010514

REACTIONS (4)
  - LOCAL SWELLING [None]
  - OEDEMA PERIPHERAL [None]
  - RASH [None]
  - SWELLING FACE [None]
